FAERS Safety Report 16126447 (Version 1)
Quarter: 2019Q2

REPORT INFORMATION
  Report Type: Spontaneous
  Country: US (occurrence: US)
  Receive Date: 20190327
  Receipt Date: 20190327
  Transmission Date: 20190711
  Serious: No
  Sender: FDA-Public Use
  Company Number: None

PATIENT
  Age: 47 Year
  Sex: Female
  Weight: 50.4 kg

DRUGS (11)
  1. AIMOVIG [Suspect]
     Active Substance: ERENUMAB-AOOE
     Indication: MIGRAINE
     Dosage: ?          QUANTITY:1 INJECTION(S);OTHER FREQUENCY:ONCE A MONTH;?
     Route: 058
     Dates: start: 20181107, end: 20190325
  2. BUPROPION HYDROCHLORIDE XL [Concomitant]
     Active Substance: BUPROPION HYDROCHLORIDE
  3. ASPIRIN. [Concomitant]
     Active Substance: ASPIRIN
  4. FAMOTIDINE. [Concomitant]
     Active Substance: FAMOTIDINE
  5. LAMOTRIGINE. [Concomitant]
     Active Substance: LAMOTRIGINE
  6. ROSUVASTATIN CALCIUM. [Concomitant]
     Active Substance: ROSUVASTATIN CALCIUM
  7. B-COMPLEX WITH VITAMIN C [Concomitant]
  8. BACLOFEN. [Concomitant]
     Active Substance: BACLOFEN
  9. HIGH POTENCY MAGNESIUM [Concomitant]
  10. DEXILANT [Concomitant]
     Active Substance: DEXLANSOPRAZOLE
  11. QUETIAPINE FUMARATE. [Concomitant]
     Active Substance: QUETIAPINE FUMARATE

REACTIONS (6)
  - Influenza [None]
  - Productive cough [None]
  - Lower respiratory tract infection [None]
  - Wrong technique in product usage process [None]
  - Cough [None]
  - Migraine [None]

NARRATIVE: CASE EVENT DATE: 20181107
